FAERS Safety Report 5343774-8 (Version None)
Quarter: 2007Q2

REPORT INFORMATION
  Report Type: 
  Country: None (occurrence: None)
  Receive Date: 20070604
  Receipt Date: 20070531
  Transmission Date: 20071010
  Serious: Yes (Hospitalization, Other)
  Sender: FDA-Public Use
  Company Number: AU-AMGEN-US225183

PATIENT
  Sex: Male

DRUGS (18)
  1. AMG 706 [Suspect]
     Indication: DRUG LEVEL
     Route: 048
     Dates: start: 20070105, end: 20070514
  2. PANITUMUMAB [Suspect]
     Indication: COLORECTAL CANCER
     Route: 065
     Dates: start: 20070103, end: 20070423
  3. PANITUMUMAB [Suspect]
     Route: 042
     Dates: start: 20070508, end: 20070508
  4. OXALIPLATIN [Concomitant]
     Indication: COLORECTAL CANCER
     Route: 042
     Dates: start: 20070423, end: 20070423
  5. LEUCOVORIN CALCIUM [Concomitant]
     Route: 065
     Dates: start: 20070423, end: 20070423
  6. LEUCOVORIN CALCIUM [Concomitant]
     Route: 065
     Dates: start: 20070424, end: 20070424
  7. FLUOROURACIL [Concomitant]
     Route: 040
     Dates: start: 20070423, end: 20070423
  8. FLUOROURACIL [Concomitant]
     Route: 040
     Dates: start: 20070424, end: 20070424
  9. FLUOROURACIL [Concomitant]
     Route: 042
     Dates: start: 20070423, end: 20070424
  10. FLUOROURACIL [Concomitant]
     Route: 042
     Dates: start: 20070424, end: 20070424
  11. AMLODIPINE [Concomitant]
  12. GLUCOSAMINE [Concomitant]
  13. VITAMIN D [Concomitant]
  14. CENTRUM [Concomitant]
  15. CALTRATE [Concomitant]
  16. IMODIUM [Concomitant]
     Route: 048
  17. CANDESARTAN [Concomitant]
     Route: 065
  18. ROSUVASTATIN [Concomitant]
     Route: 065

REACTIONS (3)
  - DEHYDRATION [None]
  - DIARRHOEA [None]
  - VOMITING [None]
